FAERS Safety Report 6832116-4 (Version None)
Quarter: 2010Q3

REPORT INFORMATION
  Report Type: 
  Country: None (occurrence: None)
  Receive Date: 20100712
  Receipt Date: 20100709
  Transmission Date: 20110219
  Serious: Yes (Hospitalization)
  Sender: FDA-Public Use
  Company Number: GXBR2010US01167

PATIENT
  Sex: Female
  Weight: 92.971 kg

DRUGS (3)
  1. PROMETHAZINE HCL TABLETS, USP (NGX) [Suspect]
     Indication: NAUSEA
     Dosage: 50 MG, ONCE/SINGLE
     Route: 048
     Dates: start: 20100615, end: 20100615
  2. INSULIN [Concomitant]
  3. ANTIHYPERTENSIVES [Concomitant]

REACTIONS (13)
  - BLOOD PRESSURE FLUCTUATION [None]
  - BLOOD PRESSURE SYSTOLIC DECREASED [None]
  - BONE MARROW DISORDER [None]
  - EYE ROLLING [None]
  - FATIGUE [None]
  - HALLUCINATION [None]
  - HYPERHIDROSIS [None]
  - MALAISE [None]
  - NAIL DISCOLOURATION [None]
  - PALLOR [None]
  - PERIPHERAL COLDNESS [None]
  - PLATELET COUNT DECREASED [None]
  - SKIN DISCOLOURATION [None]
